FAERS Safety Report 16712686 (Version 1)
Quarter: 2019Q3

REPORT INFORMATION
  Report Type: Spontaneous
  Country: RO (occurrence: RO)
  Receive Date: 20190816
  Receipt Date: 20190816
  Transmission Date: 20191004
  Serious: Yes (Other)
  Sender: FDA-Public Use
  Company Number: PHHY2019RO187987

PATIENT
  Age: 31 Year
  Sex: Male

DRUGS (1)
  1. PASIREOTIDE LAR [Suspect]
     Active Substance: PASIREOTIDE
     Indication: ACROMEGALY
     Dosage: 40 MG, QMO
     Route: 065

REACTIONS (1)
  - Hepatocellular injury [Unknown]
